FAERS Safety Report 5289210-1 (Version None)
Quarter: 2007Q1

REPORT INFORMATION
  Report Type: 
  Country: None (occurrence: None)
  Receive Date: 20070124
  Receipt Date: 20060524
  Transmission Date: 20070707
  Serious: Yes (Death)
  Sender: FDA-Public Use
  Company Number: E2020-00086-SPO-US

PATIENT
  Age: 89 Year
  Sex: Male

DRUGS (10)
  1. ARICEPT [Suspect]
     Indication: DEMENTIA ALZHEIMER'S TYPE
     Dosage: SEE IMAGE
     Route: 048
     Dates: start: 20030801, end: 20030901
  2. ARICEPT [Suspect]
     Indication: DEMENTIA ALZHEIMER'S TYPE
     Dosage: SEE IMAGE
     Route: 048
     Dates: start: 20030901
  3. PROSCAR [Concomitant]
  4. TUSSIONEX (TUSSIONEX ^PENNWALT^) [Concomitant]
  5. LEVAQUIN [Concomitant]
  6. CYANOCOBALAM (CYANOCOBALAMIN) [Concomitant]
  7. CLODERM (CLOCORTOLONE PIVALATE) [Concomitant]
  8. CLOBETASOL-T (CLOBETASOL) [Concomitant]
  9. FAMOTIDINE [Concomitant]
  10. CLOTRIMAZOLE [Concomitant]

REACTIONS (3)
  - DEATH [None]
  - LETHARGY [None]
  - OVERDOSE [None]
